FAERS Safety Report 5450186-5 (Version None)
Quarter: 2007Q3

REPORT INFORMATION
  Report Type: 
  Country: None (occurrence: None)
  Receive Date: 20070912
  Receipt Date: 20070831
  Transmission Date: 20080115
  Serious: Yes (Hospitalization)
  Sender: FDA-Public Use
  Company Number: JP-ELI_LILLY_AND_COMPANY-JP200706003397

PATIENT
  Age: 63 Year
  Sex: Male
  Weight: 80 kg

DRUGS (14)
  1. DULOXETINE HYDROCHLORIDE [Suspect]
     Indication: DIABETIC NEUROPATHY
     Dosage: 20 MG, DAILY (1/D)
     Route: 048
     Dates: start: 20061117, end: 20061123
  2. DULOXETINE HYDROCHLORIDE [Suspect]
     Dosage: 40 MG, DAILY (1/D)
     Route: 048
     Dates: start: 20061124, end: 20061130
  3. DULOXETINE HYDROCHLORIDE [Suspect]
     Dosage: 60 MG, DAILY (1/D)
     Route: 048
     Dates: start: 20061201, end: 20070606
  4. DULOXETINE HYDROCHLORIDE [Suspect]
     Dosage: 40 MG, DAILY (1/D)
     Route: 048
     Dates: start: 20070607, end: 20070613
  5. DULOXETINE HYDROCHLORIDE [Suspect]
     Dosage: 20 MG, DAILY (1/D)
     Route: 048
     Dates: start: 20070614, end: 20070620
  6. METHYCOBAL [Concomitant]
     Indication: DIABETIC NEUROPATHY
     Dosage: 1500 UG, DAILY (1/D)
     Route: 048
  7. ASPIRIN [Concomitant]
     Indication: THROMBOSIS PROPHYLAXIS
     Dosage: 100 MG, DAILY (1/D)
     Route: 048
  8. HUMALOG [Concomitant]
     Indication: TYPE 2 DIABETES MELLITUS
     Dosage: 60 IU, DAILY (1/D)
     Route: 058
     Dates: end: 20070605
  9. INNOLET N [Concomitant]
     Indication: TYPE 2 DIABETES MELLITUS
     Dosage: 30 IU, DAILY (1/D)
     Route: 058
     Dates: end: 20070605
  10. HUMULIN 70/30 [Concomitant]
     Indication: TYPE 2 DIABETES MELLITUS
     Dosage: 4 IU, DAILY (1/D)
     Route: 058
     Dates: start: 20070606, end: 20070606
  11. HUMULIN 70/30 [Concomitant]
     Dosage: 10 IU, DAILY (1/D)
     Route: 058
     Dates: start: 20070607, end: 20070607
  12. HUMULIN 70/30 [Concomitant]
     Dosage: 4 IU, DAILY (1/D)
     Route: 058
     Dates: start: 20070608
  13. AMLODIPINE [Concomitant]
     Indication: HYPERTENSION
     Dosage: 5 MG, DAILY (1/D)
     Route: 048
     Dates: start: 20070530
  14. OLMETEC [Concomitant]
     Indication: HYPERTENSION
     Dosage: 20 MG, DAILY (1/D)
     Route: 048
     Dates: start: 20070530

REACTIONS (6)
  - BRAIN STEM SYNDROME [None]
  - DIPLOPIA [None]
  - DIZZINESS [None]
  - HEADACHE [None]
  - IIIRD NERVE PARALYSIS [None]
  - NAUSEA [None]
